FAERS Safety Report 10159356 (Version 2)
Quarter: 2014Q2

REPORT INFORMATION
  Report Type: Spontaneous
  Country: CA (occurrence: CA)
  Receive Date: 20140508
  Receipt Date: 20140508
  Transmission Date: 20141212
  Serious: Yes (Hospitalization, Other)
  Sender: FDA-Public Use
  Company Number: CA-AMGEN-CANSP2014005442

PATIENT
  Age: 74 Year
  Sex: Female

DRUGS (2)
  1. PROLIA [Suspect]
     Indication: OSTEOPOROSIS POSTMENOPAUSAL
     Dosage: 60 MG/ML, Q6MO
     Route: 058
     Dates: start: 20121128
  2. PREDNISOLONE [Concomitant]
     Dosage: UNK
     Route: 065
     Dates: start: 2008

REACTIONS (8)
  - Hospitalisation [Not Recovered/Not Resolved]
  - Hip surgery [Unknown]
  - Dry skin [Not Recovered/Not Resolved]
  - Papule [Unknown]
  - Muscle spasms [Unknown]
  - Arthritis [Unknown]
  - Erythema [Unknown]
  - Eczema [Unknown]
